FAERS Safety Report 6763555-8 (Version None)
Quarter: 2010Q2

REPORT INFORMATION
  Report Type: 
  Country: None (occurrence: None)
  Receive Date: 20100610
  Receipt Date: 20100531
  Transmission Date: 20101027
  Serious: Yes (Hospitalization)
  Sender: FDA-Public Use
  Company Number: PHHY2010IT36238

PATIENT
  Sex: Male

DRUGS (8)
  1. TEGRETOL [Suspect]
     Indication: STATUS EPILEPTICUS
     Dosage: 800 MG DAILY
     Route: 048
     Dates: start: 20010101
  2. DEPAKENE [Suspect]
     Indication: STATUS EPILEPTICUS
     Dosage: 2050 MG
     Dates: start: 20100506
  3. DEPAKENE [Suspect]
     Dosage: 1800 MG
     Dates: start: 20100506
  4. ENAPREN [Concomitant]
     Dosage: 20 MG
     Route: 048
  5. AUGMENTIN '125' [Concomitant]
  6. ASPIRIN [Concomitant]
  7. LANSOX [Concomitant]
     Dosage: 30 MG
     Route: 048
  8. NORVASC [Concomitant]
     Dosage: 5 MG
     Route: 048

REACTIONS (2)
  - ATAXIA [None]
  - PSYCHOMOTOR RETARDATION [None]
